FAERS Safety Report 4687644-7 (Version None)
Quarter: 2005Q2

REPORT INFORMATION
  Report Type: 
  Country: None (occurrence: None)
  Receive Date: 20050608
  Receipt Date: 20050608
  Transmission Date: 20051028
  Serious: Yes (Life-Threatening)
  Sender: FDA-Public Use
  Company Number: None

PATIENT
  Age: 36 Year
  Sex: Male
  Weight: 94 kg

DRUGS (8)
  1. XIGRIS [Suspect]
     Indication: MENINGITIS
     Dosage: 24MCG/KG/HR     INTRAVENOU
     Route: 042
     Dates: start: 20050606, end: 20050607
  2. XIGRIS [Suspect]
     Indication: SEPSIS
     Dosage: 24MCG/KG/HR     INTRAVENOU
     Route: 042
     Dates: start: 20050606, end: 20050607
  3. DEXAMETHASONE [Concomitant]
  4. VANCOMYCIN [Concomitant]
  5. CEFOTAXIME [Concomitant]
  6. PROPOFOL [Concomitant]
  7. ACETAMINOPHEN [Concomitant]
  8. INSULIN [Concomitant]

REACTIONS (3)
  - EPISTAXIS [None]
  - MOUTH HAEMORRHAGE [None]
  - UPPER GASTROINTESTINAL HAEMORRHAGE [None]
